FAERS Safety Report 4944226-7 (Version None)
Quarter: 2006Q1

REPORT INFORMATION
  Report Type: 
  Country: None (occurrence: None)
  Receive Date: 20060315
  Receipt Date: 20060301
  Transmission Date: 20060701
  Serious: Yes (Other)
  Sender: FDA-Public Use
  Company Number: GB-JNJFOC-20060303045

PATIENT
  Sex: Female
  Weight: 63 kg

DRUGS (5)
  1. TRAMADOL HCL [Suspect]
     Indication: ANALGESIC EFFECT
     Route: 042
  2. DICLOFENAC EPOLAMINE PATCH [Concomitant]
     Indication: BACK PAIN
     Route: 048
  3. VENTOLIN [Concomitant]
     Indication: ASTHMA
     Route: 055
  4. SERETIDE [Concomitant]
     Route: 055
  5. SERETIDE [Concomitant]
     Indication: ASTHMA
     Route: 055

REACTIONS (12)
  - AGITATION [None]
  - ANXIETY [None]
  - DYSARTHRIA [None]
  - DYSKINESIA [None]
  - DYSPNOEA [None]
  - FEAR [None]
  - NAUSEA [None]
  - PAIN [None]
  - PANIC REACTION [None]
  - PARANOIA [None]
  - RESTLESSNESS [None]
  - SWOLLEN TONGUE [None]
